FAERS Safety Report 10937195 (Version 2)
Quarter: 2015Q2

REPORT INFORMATION
  Report Type: Spontaneous
  Country: US (occurrence: US)
  Receive Date: 20150321
  Receipt Date: 20150525
  Transmission Date: 20150821
  Serious: No
  Sender: FDA-Public Use
  Company Number: US-JNJFOC-20130500424

PATIENT
  Sex: Male
  Weight: 98.88 kg

DRUGS (1)
  1. UNSPECIFIED TOPIRAMATE [Suspect]
     Active Substance: TOPIRAMATE
     Indication: VERTIGO
     Route: 048

REACTIONS (2)
  - Vertigo [Recovering/Resolving]
  - Stress [Unknown]
